FAERS Safety Report 6888058-1 (Version None)
Quarter: 2010Q3

REPORT INFORMATION
  Report Type: 
  Country: None (occurrence: None)
  Receive Date: 20100730
  Receipt Date: 20100719
  Transmission Date: 20110219
  Serious: Yes (Death)
  Sender: FDA-Public Use
  Company Number: LV-WYE-H16349310

PATIENT
  Age: 28 Year
  Sex: Male

DRUGS (1)
  1. CORDARONE [Suspect]
     Dosage: UNSPECIFIED
     Dates: start: 20090601, end: 20090701

REACTIONS (1)
  - LUNG DISORDER [None]
